FAERS Safety Report 18984866 (Version 1)
Quarter: 2021Q1

REPORT INFORMATION
  Report Type: Other
  Country: ES (occurrence: ES)
  Receive Date: 20210309
  Receipt Date: 20210309
  Transmission Date: 20210420
  Serious: Yes (Hospitalization)
  Sender: FDA-Public Use
  Company Number: ES-ORCHID HEALTHCARE-2107739

PATIENT
  Age: 53 Year
  Sex: Female

DRUGS (1)
  1. RISEDRONATE SODIUM. [Suspect]
     Active Substance: RISEDRONATE SODIUM
     Indication: OSTEITIS DEFORMANS
     Route: 065

REACTIONS (1)
  - Erythema multiforme [Unknown]
